FAERS Safety Report 7149997-X (Version None)
Quarter: 2010Q4

REPORT INFORMATION
  Report Type: 
  Country: None (occurrence: None)
  Receive Date: 20101210
  Receipt Date: 20101202
  Transmission Date: 20110411
  Serious: Yes (Hospitalization)
  Sender: FDA-Public Use
  Company Number: US-SHIRE-SPV1-2010-02101

PATIENT
  Sex: Female
  Weight: 31.746 kg

DRUGS (2)
  1. DAYTRANA [Suspect]
     Indication: ATTENTION DEFICIT/HYPERACTIVITY DISORDER
     Dosage: 30 MG, 1X/DAY:QD
     Route: 062
     Dates: start: 20101001
  2. DAYTRANA [Suspect]
     Dosage: 20 MG, 1X/DAY:QD
     Route: 062
     Dates: start: 20101001

REACTIONS (5)
  - AGGRESSION [None]
  - APPLICATION SITE PRURITUS [None]
  - OVERDOSE [None]
  - PRODUCT QUALITY ISSUE [None]
  - SELF-INJURIOUS IDEATION [None]
